FAERS Safety Report 9783307 (Version 4)
Quarter: 2014Q3

REPORT INFORMATION
  Report Type: Spontaneous
  Country: US (occurrence: None)
  Receive Date: 20131223
  Receipt Date: 20140725
  Transmission Date: 20150326
  Serious: Yes (Death)
  Sender: FDA-Public Use
  Company Number: US-RRD-13-00051

PATIENT
  Age: 61 Year
  Sex: Female

DRUGS (3)
  1. CYTOXAN (CYCLOPHOSPHAMIDE) [Concomitant]
  2. VINCRISTINE (VINCRISTINE) (VINCRISTINE) [Concomitant]
     Active Substance: VINCRISTINE
  3. COSMEGEN [Suspect]
     Active Substance: DACTINOMYCIN
     Indication: RHABDOMYOSARCOMA
     Dosage: 15 MCG/KG/DAY   (NOT OTHERWISE SPECIFIED)
     Route: 042

REACTIONS (2)
  - Ovarian cancer [None]
  - Death [None]
